FAERS Safety Report 21713956 (Version 1)
Quarter: 2022Q4

REPORT INFORMATION
  Report Type: Spontaneous
  Country: US (occurrence: US)
  Receive Date: 20221212
  Receipt Date: 20221212
  Transmission Date: 20230113
  Serious: No
  Sender: FDA-Public Use
  Company Number: US-PFIZER INC-202201359240

PATIENT
  Age: 77 Year
  Sex: Female

DRUGS (4)
  1. PAXLOVID [Interacting]
     Active Substance: NIRMATRELVIR\RITONAVIR
     Indication: COVID-19 treatment
     Dosage: 3 DF, 2X/DAY (3 PILLS IN THE MORNING AND 3 AT NIGHT)
     Route: 048
     Dates: start: 20221206
  2. AMIODARONE [Interacting]
     Active Substance: AMIODARONE
     Indication: Arrhythmia
     Dosage: 200 MG, 1X/DAY
     Route: 048
     Dates: start: 2022
  3. LOSARTAN POTASSIUM [Concomitant]
     Active Substance: LOSARTAN POTASSIUM
     Indication: Blood pressure abnormal
     Dosage: UNK
  4. AMLODIPINE BESYLATE [Concomitant]
     Active Substance: AMLODIPINE BESYLATE
     Indication: Blood pressure abnormal
     Dosage: UNK

REACTIONS (1)
  - Labelled drug-drug interaction medication error [Unknown]

NARRATIVE: CASE EVENT DATE: 20221206
